FAERS Safety Report 14922926 (Version 3)
Quarter: 2018Q3

REPORT INFORMATION
  Report Type: Report from Study
  Country: US (occurrence: US)
  Receive Date: 20180522
  Receipt Date: 20180807
  Transmission Date: 20181010
  Serious: Yes (Hospitalization, Other)
  Sender: FDA-Public Use
  Company Number: US-GILEAD-2018-0339087

PATIENT
  Age: 69 Year
  Sex: Female

DRUGS (1)
  1. AMBRISENTAN [Suspect]
     Active Substance: AMBRISENTAN
     Indication: PRODUCT USED FOR UNKNOWN INDICATION
     Dosage: 5 MG, QD
     Route: 065
     Dates: start: 20180515

REACTIONS (15)
  - Hidradenitis [Not Recovered/Not Resolved]
  - Dizziness [Unknown]
  - Central venous catheterisation [Unknown]
  - Arthritis [Unknown]
  - Blister infected [Recovering/Resolving]
  - Constipation [Not Recovered/Not Resolved]
  - Sinus disorder [Not Recovered/Not Resolved]
  - Hyperhidrosis [Unknown]
  - Abscess sweat gland [Unknown]
  - Colitis ulcerative [Not Recovered/Not Resolved]
  - Asthma [Not Recovered/Not Resolved]
  - Sepsis [Unknown]
  - Gait disturbance [Unknown]
  - Hypotension [Not Recovered/Not Resolved]
  - Pyrexia [Unknown]

NARRATIVE: CASE EVENT DATE: 20180613
